FAERS Safety Report 9655968 (Version 1)
Quarter: 2013Q4

REPORT INFORMATION
  Report Type: Spontaneous
  Country: US (occurrence: None)
  Receive Date: 20131029
  Receipt Date: 20131029
  Transmission Date: 20140711
  Serious: Yes (Disabling)
  Sender: FDA-Public Use
  Company Number: None

PATIENT
  Age: 59 Year
  Sex: Female
  Weight: 46.27 kg

DRUGS (1)
  1. PROLIA [Suspect]
     Dosage: ONE INJECTION GIVEN INTO/UNDER THE SKIN
     Dates: start: 20130415, end: 20131028

REACTIONS (5)
  - Back pain [None]
  - Muscle spasms [None]
  - Blood cholesterol increased [None]
  - Pain in extremity [None]
  - Abasia [None]
